FAERS Safety Report 23219790 (Version 3)
Quarter: 2024Q1

REPORT INFORMATION
  Report Type: Report from Study
  Country: US (occurrence: US)
  Receive Date: 20231122
  Receipt Date: 20240108
  Transmission Date: 20240410
  Serious: No
  Sender: FDA-Public Use
  Company Number: US-TAIHOP-2023-010001

PATIENT
  Age: 60 Year
  Sex: Male
  Weight: 61.19 kg

DRUGS (1)
  1. LONSURF [Suspect]
     Active Substance: TIPIRACIL HYDROCHLORIDE\TRIFLURIDINE
     Indication: Rectal cancer metastatic
     Dosage: CYCLE UNKNOWN
     Route: 048
     Dates: end: 202309

REACTIONS (1)
  - No adverse event [Unknown]
